FAERS Safety Report 9948321 (Version 2)
Quarter: 2014Q1

REPORT INFORMATION
  Report Type: Report from Study
  Country: US (occurrence: US)
  Receive Date: 20140303
  Receipt Date: 20140303
  Transmission Date: 20141002
  Serious: No
  Sender: FDA-Public Use
  Company Number: US-ABBVIE-13P-163-1049586-00

PATIENT
  Age: 25 Year
  Sex: Female

DRUGS (4)
  1. HUMIRA [Suspect]
     Indication: CROHN^S DISEASE
     Dosage: DAY 1
     Dates: start: 20130119, end: 20130119
  2. HUMIRA [Suspect]
     Dosage: DAY 16
  3. HUMIRA [Suspect]
  4. METROGEL [Concomitant]
     Indication: ROSACEA

REACTIONS (2)
  - Injection site bruising [Recovering/Resolving]
  - Cyst [Recovered/Resolved]
